FAERS Safety Report 8775891 (Version 1)
Quarter: 2012Q4

REPORT INFORMATION
  Report Type: Report from Study
  Country: JP (occurrence: JP)
  Receive Date: 20120910
  Receipt Date: 20120910
  Transmission Date: 20130627
  Serious: Yes (Death, Life-Threatening, Hospitalization, Other)
  Sender: FDA-Public Use
  Company Number: JP-BRISTOL-MYERS SQUIBB COMPANY-16676553

PATIENT
  Age: 64 Year
  Sex: Male
  Weight: 61 kg

DRUGS (11)
  1. CARBOPLATIN [Suspect]
     Indication: LUNG ADENOCARCINOMA
     Route: 042
     Dates: start: 20120229, end: 20120229
  2. ALIMTA [Suspect]
     Indication: LUNG ADENOCARCINOMA
     Route: 042
     Dates: start: 20120229, end: 20120229
  3. BEVACIZUMAB [Suspect]
     Indication: LUNG ADENOCARCINOMA
     Route: 042
     Dates: start: 20120229, end: 20120229
  4. DECADRON [Concomitant]
  5. ALOXI [Concomitant]
     Dates: start: 20120229, end: 20120229
  6. FLUITRAN [Concomitant]
  7. ATELEC [Concomitant]
  8. OLMETEC [Concomitant]
  9. BAYASPIRIN [Concomitant]
  10. FOLIC ACID [Concomitant]
  11. VITAMIN B12 [Concomitant]

REACTIONS (4)
  - Pneumonia aspiration [Fatal]
  - Oesophageal haemorrhage [Recovered/Resolved]
  - Sepsis [Recovered/Resolved]
  - Malignant neoplasm progression [Unknown]
